FAERS Safety Report 14861485 (Version 2)
Quarter: 2018Q2

REPORT INFORMATION
  Report Type: Report from Study
  Country: HU (occurrence: HU)
  Receive Date: 20180508
  Receipt Date: 20180514
  Transmission Date: 20180711
  Serious: Yes (Hospitalization, Other)
  Sender: FDA-Public Use
  Company Number: HU-BAYER-2018-029199

PATIENT
  Sex: Female
  Weight: 52.5 kg

DRUGS (4)
  1. STIVARGA [Suspect]
     Active Substance: REGORAFENIB
     Indication: COLORECTAL CANCER METASTATIC
     Dosage: DAILY DOSE 80 MG
     Route: 048
     Dates: start: 2018
  2. STIVARGA [Suspect]
     Active Substance: REGORAFENIB
     Indication: COLORECTAL CANCER METASTATIC
     Dosage: 120 MG DAILY
     Route: 048
     Dates: start: 20180215, end: 2018
  3. STIVARGA [Suspect]
     Active Substance: REGORAFENIB
     Indication: COLORECTAL CANCER METASTATIC
     Dosage: 120 MG DAILY
     Route: 048
     Dates: start: 2018, end: 2018
  4. STIVARGA [Suspect]
     Active Substance: REGORAFENIB
     Indication: COLORECTAL CANCER METASTATIC
     Dosage: DAILY DOSE 160 MG
     Route: 048
     Dates: start: 20180208, end: 201802

REACTIONS (35)
  - Weight increased [None]
  - Wheezing [Recovered/Resolved]
  - Palmar-plantar erythrodysaesthesia syndrome [Recovered/Resolved]
  - Skin exfoliation [Recovered/Resolved]
  - Cough [Recovered/Resolved]
  - Hypertension [Recovering/Resolving]
  - Hypokalaemia [None]
  - Asthenia [None]
  - Microcytic anaemia [Recovered/Resolved]
  - Fatigue [Not Recovered/Not Resolved]
  - Blister [Recovered/Resolved]
  - Hyperaemia [Recovered/Resolved]
  - Diarrhoea [Recovered/Resolved]
  - Anaemia [Not Recovered/Not Resolved]
  - Palmar-plantar erythrodysaesthesia syndrome [Not Recovered/Not Resolved]
  - Chills [Recovered/Resolved]
  - Hypertension [Recovered/Resolved]
  - Blood potassium decreased [Recovered/Resolved]
  - Dyspnoea [Recovered/Resolved]
  - Hypoaesthesia [Not Recovered/Not Resolved]
  - Decreased appetite [Recovered/Resolved]
  - Erythema [Recovered/Resolved]
  - Productive cough [Recovered/Resolved]
  - Oedema peripheral [None]
  - Cough [None]
  - Palmar-plantar erythrodysaesthesia syndrome [Recovered/Resolved]
  - Palmar-plantar erythrodysaesthesia syndrome [Recovered/Resolved]
  - Pain of skin [Recovered/Resolved]
  - Palmar-plantar erythrodysaesthesia syndrome [Recovered/Resolved]
  - Fatigue [Recovering/Resolving]
  - Palmar-plantar erythrodysaesthesia syndrome [None]
  - Renal impairment [Recovered/Resolved]
  - Hypoproteinaemia [Recovered/Resolved]
  - Pyrexia [Recovered/Resolved]
  - Pain in extremity [Recovered/Resolved]

NARRATIVE: CASE EVENT DATE: 2018
